FAERS Safety Report 5847925-8 (Version None)
Quarter: 2008Q3

REPORT INFORMATION
  Report Type: 
  Country: None (occurrence: None)
  Receive Date: 20080814
  Receipt Date: 20080804
  Transmission Date: 20090109
  Serious: Yes (Hospitalization)
  Sender: FDA-Public Use
  Company Number: 2008BI008158

PATIENT
  Age: 39 Year
  Sex: Female
  Weight: 60 kg

DRUGS (4)
  1. AVONEX [Suspect]
     Indication: MULTIPLE SCLEROSIS
     Dosage: 30 UG; QW; IM
     Route: 030
     Dates: start: 20011101
  2. GABAPENTIN [Concomitant]
  3. CITALOPRAM HYDROBROMIDE [Concomitant]
  4. CEFPODIXIM [Concomitant]

REACTIONS (24)
  - ABDOMINAL PAIN [None]
  - ACUTE SINUSITIS [None]
  - AGITATION [None]
  - ANGER [None]
  - APPENDICITIS [None]
  - ASTHENIA [None]
  - BRONCHITIS [None]
  - COUGH [None]
  - DEPRESSION [None]
  - DYSAESTHESIA [None]
  - FATIGUE [None]
  - HERPES ZOSTER [None]
  - HYPERHIDROSIS [None]
  - HYPOAESTHESIA [None]
  - MONOPARESIS [None]
  - MUSCULOSKELETAL STIFFNESS [None]
  - MYALGIA [None]
  - OPTIC NEURITIS [None]
  - PAIN IN EXTREMITY [None]
  - PARESIS [None]
  - PERSONALITY DISORDER [None]
  - SPEECH DISORDER [None]
  - TRIGEMINAL NEURALGIA [None]
  - WOUND INFECTION [None]
